FAERS Safety Report 9125096 (Version 1)
Quarter: 2013Q1

REPORT INFORMATION
  Report Type: Spontaneous
  Country: FR (occurrence: FR)
  Receive Date: 20130227
  Receipt Date: 20130227
  Transmission Date: 20140127
  Serious: Yes (Other)
  Sender: FDA-Public Use
  Company Number: PHHY2012FR115588

PATIENT
  Sex: Male

DRUGS (4)
  1. GALVUS [Suspect]
     Indication: DIABETES MELLITUS
  2. METFORMIN [Suspect]
  3. DIAMICRON [Suspect]
  4. ANGIOTENSIN CONVERTING ENZYME BLOCKERS [Concomitant]
     Dosage: UNK UKN, UNK

REACTIONS (1)
  - Angioedema [Unknown]
